FAERS Safety Report 9799696 (Version 2)
Quarter: 2014Q1

REPORT INFORMATION
  Report Type: Spontaneous
  Country: US (occurrence: US)
  Receive Date: 20140106
  Receipt Date: 20140106
  Transmission Date: 20141002
  Serious: No
  Sender: FDA-Public Use
  Company Number: US-GILEAD-2010-0031830

PATIENT
  Age: 76 Year
  Sex: Female
  Weight: 82.55 kg

DRUGS (8)
  1. LETAIRIS [Suspect]
     Indication: PULMONARY ARTERIAL HYPERTENSION
     Route: 048
     Dates: start: 20100430
  2. METOPROLOL TARTRATE [Concomitant]
  3. LASIX [Concomitant]
  4. PRAVACHOL [Concomitant]
  5. FLEXERIL [Concomitant]
  6. CORTISONE [Concomitant]
  7. VICODIN [Concomitant]
  8. LOMOTIL [Concomitant]

REACTIONS (3)
  - Pain in extremity [Unknown]
  - Contusion [Unknown]
  - Nasal congestion [Unknown]
